FAERS Safety Report 24777731 (Version 1)
Quarter: 2024Q4

REPORT INFORMATION
  Report Type: Report from Study
  Country: CA (occurrence: CA)
  Receive Date: 20241226
  Receipt Date: 20241226
  Transmission Date: 20250114
  Serious: Yes (Other)
  Sender: SAMSUNG BIOEPIS
  Company Number: CA-SAMSUNG BIOEPIS-SB-2024-16986

PATIENT
  Age: 75 Year
  Sex: Female

DRUGS (4)
  1. HADLIMA [Suspect]
     Active Substance: ADALIMUMAB-BWWD
     Indication: Rheumatoid arthritis
     Dosage: 40MG/0.8ML;
     Dates: start: 20210925, end: 202309
  2. HADLIMA [Suspect]
     Active Substance: ADALIMUMAB-BWWD
     Dates: start: 20210825
  3. METHOTREXATE [Concomitant]
     Active Substance: METHOTREXATE
     Indication: Product used for unknown indication
     Route: 065
  4. PLAQUENIL [Concomitant]
     Active Substance: HYDROXYCHLOROQUINE SULFATE
     Indication: Product used for unknown indication
     Route: 065

REACTIONS (3)
  - Colon cancer [Unknown]
  - Gastrointestinal carcinoma [Not Recovered/Not Resolved]
  - Lung disorder [Not Recovered/Not Resolved]
